FAERS Safety Report 10008024 (Version 4)
Quarter: 2015Q1

REPORT INFORMATION
  Report Type: Report from Study
  Country: JP (occurrence: JP)
  Receive Date: 20140313
  Receipt Date: 20150209
  Transmission Date: 20150720
  Serious: Yes (Other)
  Sender: FDA-Public Use
  Company Number: PHHY2012JP004949

PATIENT
  Age: 58 Year
  Sex: Male

DRUGS (49)
  1. CLOZARIL [Suspect]
     Active Substance: CLOZAPINE
     Dosage: 125 MG, UNK
     Route: 048
     Dates: start: 20120225, end: 20120229
  2. CLOZARIL [Suspect]
     Active Substance: CLOZAPINE
     Dosage: 150 MG, UNK
     Route: 048
     Dates: start: 20120425, end: 20120504
  3. RISPERIDONE. [Concomitant]
     Active Substance: RISPERIDONE
     Dosage: 4 MG, UNK
     Route: 048
     Dates: start: 20111225, end: 20120101
  4. RISPERIDONE. [Concomitant]
     Active Substance: RISPERIDONE
     Dosage: 2 MG, UNK
     Route: 048
     Dates: start: 20120206, end: 20120210
  5. CLOZARIL [Suspect]
     Active Substance: CLOZAPINE
     Dosage: 150 MG, UNK
     Route: 048
     Dates: start: 20120301, end: 20120305
  6. CLOZARIL [Suspect]
     Active Substance: CLOZAPINE
     Dosage: 75 MG, UNK
     Route: 048
     Dates: start: 20120215, end: 20120219
  7. CLOZARIL [Suspect]
     Active Substance: CLOZAPINE
     Dosage: 175 MG, UNK
     Route: 048
     Dates: start: 20120306, end: 20120310
  8. CLOZARIL [Suspect]
     Active Substance: CLOZAPINE
     Dosage: 125 MG, UNK
     Route: 048
     Dates: start: 20120418, end: 20120424
  9. RISPERIDONE. [Concomitant]
     Active Substance: RISPERIDONE
     Dosage: 6 MG, UNK
     Route: 048
     Dates: start: 20111214, end: 20111218
  10. RISPERIDONE. [Concomitant]
     Active Substance: RISPERIDONE
     Dosage: 1 MG, UNK
     Route: 048
     Dates: start: 20120211, end: 20120213
  11. CLOZARIL [Suspect]
     Active Substance: CLOZAPINE
     Dosage: 25 MG, UNK
     Route: 048
     Dates: start: 20111215, end: 20111217
  12. CLOZARIL [Suspect]
     Active Substance: CLOZAPINE
     Dosage: 100 MG, UNK
     Route: 048
     Dates: start: 20120220, end: 20120224
  13. RISPERIDONE. [Concomitant]
     Active Substance: RISPERIDONE
     Dosage: 1 MG, UNK
     Route: 048
     Dates: start: 20120107, end: 20120108
  14. EURODIN [Concomitant]
     Active Substance: ESTAZOLAM
     Indication: SCHIZOPHRENIA, PARANOID TYPE
     Dosage: 2 MG, UNK
     Route: 048
     Dates: start: 20111213
  15. MAGNESIUM OXIDE. [Concomitant]
     Active Substance: MAGNESIUM OXIDE
     Indication: SCHIZOPHRENIA, PARANOID TYPE
     Dosage: 1.67 G, UNK
     Route: 048
     Dates: start: 20111213, end: 20120613
  16. CLOZARIL [Suspect]
     Active Substance: CLOZAPINE
     Dosage: 50 MG, UNK
     Route: 048
     Dates: start: 20111218, end: 20111220
  17. CLOZARIL [Suspect]
     Active Substance: CLOZAPINE
     Dosage: 150 MG, UNK
     Route: 048
     Dates: start: 20111230, end: 20120101
  18. CLOZARIL [Suspect]
     Active Substance: CLOZAPINE
     Dosage: 175 MG, UNK
     Route: 048
     Dates: start: 20120102, end: 20120111
  19. CLOZARIL [Suspect]
     Active Substance: CLOZAPINE
     Dosage: 12.5 MG, UNK
     Route: 048
     Dates: start: 20120125, end: 20120125
  20. CLOZARIL [Suspect]
     Active Substance: CLOZAPINE
     Dosage: 25 MG, UNK
     Route: 048
     Dates: start: 20120126, end: 20120130
  21. CLOZARIL [Suspect]
     Active Substance: CLOZAPINE
     Dosage: 25 MG, UNK
     Route: 048
     Dates: start: 20120203, end: 20120206
  22. CLOZARIL [Suspect]
     Active Substance: CLOZAPINE
     Dosage: 100 MG, UNK
     Route: 048
     Dates: start: 20120324, end: 20120417
  23. RISPERIDONE. [Concomitant]
     Active Substance: RISPERIDONE
     Dosage: 3 MG, UNK
     Route: 048
     Dates: start: 20120201, end: 20120205
  24. LIMAS [Concomitant]
     Active Substance: LITHIUM CARBONATE
     Dosage: 1000 MG, UNK
     Route: 048
     Dates: start: 20120404, end: 20120426
  25. OMEPRAZOLE. [Concomitant]
     Active Substance: OMEPRAZOLE
     Indication: PROPHYLAXIS
     Dosage: 20 MG, UNK
     Route: 048
     Dates: start: 20111213, end: 20120613
  26. CLOZARIL [Suspect]
     Active Substance: CLOZAPINE
     Dosage: 75 MG, UNK
     Route: 048
     Dates: start: 20111221, end: 20111223
  27. CLOZARIL [Suspect]
     Active Substance: CLOZAPINE
     Dosage: 100 MG, UNK
     Route: 048
     Dates: start: 20111224, end: 20111226
  28. CLOZARIL [Suspect]
     Active Substance: CLOZAPINE
     Dosage: 125 MG, UNK
     Route: 048
     Dates: start: 20111227, end: 20111229
  29. CLOZARIL [Suspect]
     Active Substance: CLOZAPINE
     Dosage: 50 MG, UNK
     Route: 048
     Dates: start: 20120207, end: 20120214
  30. VALPROIC ACID. [Suspect]
     Active Substance: VALPROIC ACID
     Indication: AFFECTIVE DISORDER
  31. LIMAS [Concomitant]
     Active Substance: LITHIUM CARBONATE
     Indication: SCHIZOPHRENIA, PARANOID TYPE
     Dosage: 400 MG, UNK
     Route: 048
     Dates: start: 20111213, end: 20120315
  32. LIMAS [Concomitant]
     Active Substance: LITHIUM CARBONATE
     Dosage: 800 MG, UNK
     Route: 048
     Dates: start: 20120427, end: 20120607
  33. CLOZARIL [Suspect]
     Active Substance: CLOZAPINE
     Indication: SCHIZOPHRENIA, PARANOID TYPE
     Dosage: 12.5 MG, UNK
     Route: 048
     Dates: start: 20111214, end: 20111214
  34. CLOZARIL [Suspect]
     Active Substance: CLOZAPINE
     Dosage: 50 MG, UNK
     Route: 048
     Dates: start: 20120131, end: 20120202
  35. CLOZARIL [Suspect]
     Active Substance: CLOZAPINE
     Dosage: 200 MG, UNK
     Route: 048
     Dates: start: 20120311, end: 20120313
  36. CLOZARIL [Suspect]
     Active Substance: CLOZAPINE
     Dosage: 175 MG, UNK
     Route: 048
     Dates: start: 20120314, end: 20120316
  37. CLOZARIL [Suspect]
     Active Substance: CLOZAPINE
     Dosage: 150 MG, UNK
     Route: 048
     Dates: start: 20120317, end: 20120323
  38. RISPERIDONE. [Concomitant]
     Active Substance: RISPERIDONE
     Dosage: 5 MG, UNK
     Route: 048
     Dates: start: 20111219, end: 20111224
  39. RISPERIDONE. [Concomitant]
     Active Substance: RISPERIDONE
     Dosage: 2 MG, UNK
     Route: 048
     Dates: start: 20120105, end: 20120106
  40. RISPERIDONE. [Concomitant]
     Active Substance: RISPERIDONE
     Dosage: 4 MG, UNK
     Route: 048
     Dates: start: 20120126, end: 20120131
  41. FLUNITRAZEPAM [Concomitant]
     Active Substance: FLUNITRAZEPAM
     Indication: SCHIZOPHRENIA, PARANOID TYPE
     Dosage: 2 MG, UNK
     Route: 048
     Dates: start: 20111213
  42. CLOZARIL [Suspect]
     Active Substance: CLOZAPINE
     Dosage: 200 MG, UNK
     Route: 048
     Dates: start: 20120311, end: 20120313
  43. VALPROIC ACID. [Suspect]
     Active Substance: VALPROIC ACID
     Dosage: UNK
     Dates: start: 201205
  44. RISPERIDONE. [Concomitant]
     Active Substance: RISPERIDONE
     Dosage: 3 MG, UNK
     Route: 048
     Dates: start: 20120102, end: 20120104
  45. RISPERIDONE. [Concomitant]
     Active Substance: RISPERIDONE
     Dosage: 6 MG, UNK
     Route: 048
     Dates: start: 20120111, end: 20120114
  46. RISPERIDONE. [Concomitant]
     Active Substance: RISPERIDONE
     Dosage: 5 MG, UNK
     Route: 048
     Dates: start: 20120117, end: 20120124
  47. TASMOLIN [Concomitant]
     Active Substance: BIPERIDEN
     Indication: SCHIZOPHRENIA, PARANOID TYPE
     Dosage: 4 MG, UNK
     Route: 048
     Dates: start: 20111213
  48. LIMAS [Concomitant]
     Active Substance: LITHIUM CARBONATE
     Dosage: 800 MG, UNK
     Route: 048
     Dates: start: 20120316, end: 20120403
  49. MUCOSTA [Concomitant]
     Active Substance: REBAMIPIDE
     Indication: PROPHYLAXIS
     Dosage: 100 MG, UNK
     Route: 048
     Dates: start: 20120202, end: 20120215

REACTIONS (15)
  - Eating disorder [Unknown]
  - Psychiatric symptom [Unknown]
  - White blood cell count decreased [Recovering/Resolving]
  - Oropharyngeal pain [Unknown]
  - Abnormal behaviour [Unknown]
  - Restlessness [Unknown]
  - Leukopenia [Recovered/Resolved]
  - Hyperammonaemia [Unknown]
  - Neutropenia [Recovered/Resolved]
  - Pneumonia [Recovered/Resolved]
  - Cough [Unknown]
  - Self injurious behaviour [Unknown]
  - Insomnia [Unknown]
  - Pyrexia [Recovered/Resolved]
  - Drug ineffective [Unknown]

NARRATIVE: CASE EVENT DATE: 201112
